FAERS Safety Report 8248380-3 (Version None)
Quarter: 2012Q1

REPORT INFORMATION
  Report Type: 
  Country: None (occurrence: None)
  Receive Date: 20120330
  Receipt Date: 20111205
  Transmission Date: 20120608
  Serious: Yes (Death, Other)
  Sender: FDA-Public Use
  Company Number: GB-GILEAD-2011-0047847

PATIENT
  Age: 51 Year
  Sex: Male

DRUGS (10)
  1. DAUNORUBICIN CITRATE LIPOSOME [Suspect]
     Indication: ACUTE MYELOID LEUKAEMIA
     Dosage: UNK
     Dates: start: 20110923, end: 20111003
  2. MYLOTARG [Suspect]
  3. GENTAMYCIN SULFATE [Concomitant]
     Indication: PYREXIA
     Dosage: 400 MG, UNK
     Dates: start: 20110926, end: 20111005
  4. DAUNORUBICIN CITRATE LIPOSOME [Suspect]
     Indication: MYELODYSPLASTIC SYNDROME
  5. CYTARABINE [Suspect]
  6. MEROPENEM [Concomitant]
     Indication: PYREXIA
     Dosage: 1 G, TID
     Route: 042
     Dates: start: 20110929, end: 20111004
  7. PIPERACILLIN AND TAZOBACTAM [Concomitant]
     Indication: PYREXIA
     Dosage: 4.5 G, TID
     Route: 042
     Dates: start: 20110926, end: 20110929
  8. LINEZOLID [Concomitant]
     Dosage: 600 MG, BID
     Route: 042
     Dates: start: 20111003, end: 20111005
  9. VANCOMYCIN [Concomitant]
     Indication: PYREXIA
     Dosage: 1 G, BID
     Route: 042
     Dates: start: 20110930, end: 20111003
  10. CASPOFUNGIN ACETATE [Concomitant]
     Indication: ANTIFUNGAL TREATMENT
     Dosage: 70 MG, UNK
     Route: 042
     Dates: start: 20111002

REACTIONS (2)
  - VENOOCCLUSIVE DISEASE [None]
  - ASPARTATE AMINOTRANSFERASE INCREASED [None]
